FAERS Safety Report 8346778-6 (Version None)
Quarter: 2012Q2

REPORT INFORMATION
  Report Type: 
  Country: None (occurrence: None)
  Receive Date: 20120508
  Receipt Date: 20120508
  Transmission Date: 20120825
  Serious: Yes (Hospitalization)
  Sender: FDA-Public Use
  Company Number: None

PATIENT
  Age: 69 Year
  Sex: Male
  Weight: 115.6672 kg

DRUGS (1)
  1. TESTOPEL X1 SUBCUTANEOUS [Suspect]
     Indication: BLOOD TESTOSTERONE DECREASED
     Dosage: X1 SUBCUTANEOUS
     Route: 058
     Dates: start: 20120401

REACTIONS (2)
  - DYSPNOEA [None]
  - OEDEMA [None]
